FAERS Safety Report 5156507-5 (Version None)
Quarter: 2006Q4

REPORT INFORMATION
  Report Type: 
  Country: None (occurrence: None)
  Receive Date: 20061113
  Receipt Date: 20061004
  Transmission Date: 20070319
  Serious: Yes (Hospitalization, Other)
  Sender: FDA-Public Use
  Company Number: 2006062501

PATIENT
  Age: 50 Year
  Sex: Male

DRUGS (1)
  1. BEXTRA [Suspect]
     Indication: ARTHRITIS
     Dosage: 10 MG (10 MG, 1 IN 1 D)
     Dates: start: 20030618, end: 20040605

REACTIONS (6)
  - DRUG HYPERSENSITIVITY [None]
  - MITRAL VALVE DISEASE [None]
  - MYOCARDIAL INFARCTION [None]
  - RENAL FAILURE [None]
  - STENT OCCLUSION [None]
  - TRICUSPID VALVE DISEASE [None]
